FAERS Safety Report 12438623 (Version 2)
Quarter: 2016Q2

REPORT INFORMATION
  Report Type: Spontaneous
  Country: US (occurrence: US)
  Receive Date: 20160606
  Receipt Date: 20160620
  Transmission Date: 20160815
  Serious: Yes (Hospitalization, Other)
  Sender: FDA-Public Use
  Company Number: US-SMITH AND NEPHEW, INC-2016SMT00478

PATIENT
  Sex: Male

DRUGS (1)
  1. REGRANEX [Suspect]
     Active Substance: BECAPLERMIN
     Indication: WOUND
     Dosage: UNK, TWICE
     Route: 061
     Dates: start: 201605, end: 201606

REACTIONS (4)
  - Venous operation [Unknown]
  - Off label use [Unknown]
  - Hospitalisation [Unknown]
  - Malaise [Unknown]

NARRATIVE: CASE EVENT DATE: 2016
